FAERS Safety Report 17962961 (Version 1)
Quarter: 2020Q2

REPORT INFORMATION
  Report Type: Report from Study
  Country: None (occurrence: US)
  Receive Date: 20200630
  Receipt Date: 20200630
  Transmission Date: 20200714
  Serious: Yes (Other)
  Sender: FDA-Public Use
  Company Number: US-BIOVITRUM-2020US0960

PATIENT
  Sex: Female

DRUGS (1)
  1. KINERET [Suspect]
     Active Substance: ANAKINRA
     Indication: RHEUMATOID ARTHRITIS
     Route: 058
     Dates: start: 20190306

REACTIONS (32)
  - Restless legs syndrome [Unknown]
  - Disturbance in attention [Unknown]
  - Diarrhoea [Unknown]
  - Skin lesion [Unknown]
  - Arthralgia [Unknown]
  - Gluten sensitivity [Unknown]
  - Pain in extremity [Unknown]
  - Blood triglycerides increased [Unknown]
  - Rash [Unknown]
  - Neuropathy peripheral [Unknown]
  - Poor quality sleep [Unknown]
  - Malaise [Unknown]
  - Dry skin [Unknown]
  - Upper respiratory tract infection [Unknown]
  - Blood cholesterol increased [Unknown]
  - Swelling [Unknown]
  - C-reactive protein increased [Unknown]
  - Peripheral swelling [Unknown]
  - Lipohypertrophy [Unknown]
  - Fatigue [Unknown]
  - Tarsal tunnel syndrome [Unknown]
  - Low density lipoprotein increased [Unknown]
  - Foot fracture [Unknown]
  - Acanthosis nigricans [Unknown]
  - Neutropenia [Unknown]
  - Skin discolouration [Unknown]
  - Skin texture abnormal [Unknown]
  - Oropharyngeal pain [Unknown]
  - Anxiety [Unknown]
  - Tenderness [Unknown]
  - Lung disorder [Unknown]
  - Dactylitis [Unknown]
